FAERS Safety Report 9448034 (Version 2)
Quarter: 2013Q3

REPORT INFORMATION
  Report Type: Spontaneous
  Country: US (occurrence: US)
  Receive Date: 20130808
  Receipt Date: 20130913
  Transmission Date: 20140515
  Serious: No
  Sender: FDA-Public Use
  Company Number: US-009507513-1308USA003181

PATIENT
  Age: 54 Year
  Sex: Female
  Weight: 58.96 kg

DRUGS (6)
  1. MIRALAX [Suspect]
     Indication: BOWEL MOVEMENT IRREGULARITY
     Dosage: 17 G, QD
     Route: 048
     Dates: start: 20130731
  2. MIRALAX [Suspect]
     Indication: MEDICAL OBSERVATION
  3. KLONOPIN [Concomitant]
     Indication: PRODUCT USED FOR UNKNOWN INDICATION
     Dosage: UNK, UNKNOWN
  4. CALCIUM (UNSPECIFIED) [Concomitant]
     Indication: PRODUCT USED FOR UNKNOWN INDICATION
     Dosage: UNK, UNKNOWN
  5. GLUCOSAMINE [Concomitant]
     Indication: PRODUCT USED FOR UNKNOWN INDICATION
     Dosage: UNK, UNKNOWN
  6. OMEGA-3 MARINE TRIGLYCERIDES [Concomitant]
     Indication: PRODUCT USED FOR UNKNOWN INDICATION
     Dosage: UNK, UNKNOWN

REACTIONS (3)
  - Abdominal pain [Recovered/Resolved]
  - Flatulence [Recovered/Resolved]
  - Underdose [Unknown]
